FAERS Safety Report 4764255-6 (Version None)
Quarter: 2005Q3

REPORT INFORMATION
  Report Type: 
  Country: None (occurrence: None)
  Receive Date: 20050907
  Receipt Date: 20050907
  Transmission Date: 20060218
  Serious: Yes (Other)
  Sender: FDA-Public Use
  Company Number: None

PATIENT
  Age: 83 Year
  Sex: Male
  Weight: 81.6475 kg

DRUGS (1)
  1. ^BELOC^ 50MG ASTRA ZENECA [Suspect]
     Dosage: 25 MG ONE A DAY INTRACARDIA
     Route: 016

REACTIONS (1)
  - DRUG DISPENSING ERROR [None]
